FAERS Safety Report 19196346 (Version 1)
Quarter: 2021Q2

REPORT INFORMATION
  Report Type: Spontaneous
  Country: US (occurrence: US)
  Receive Date: 20210429
  Receipt Date: 20210429
  Transmission Date: 20210717
  Serious: Yes (Other)
  Sender: FDA-Public Use
  Company Number: US-TEVA-2021-US-1903963

PATIENT
  Sex: Female

DRUGS (1)
  1. VELIVET [Suspect]
     Active Substance: DESOGESTREL\ETHINYL ESTRADIOL
     Route: 065

REACTIONS (1)
  - Coeliac disease [Not Recovered/Not Resolved]
